FAERS Safety Report 6229899-3 (Version None)
Quarter: 2009Q2

REPORT INFORMATION
  Report Type: 
  Country: None (occurrence: None)
  Receive Date: 20090615
  Receipt Date: 20090609
  Transmission Date: 20091009
  Serious: Yes (Death, Hospitalization, Other)
  Sender: FDA-Public Use
  Company Number: CA-ELI_LILLY_AND_COMPANY-CA200902000243

PATIENT
  Age: 79 Year
  Sex: Female

DRUGS (14)
  1. FORTEO [Suspect]
     Indication: OSTEOPOROSIS
     Dosage: 20 UG, DAILY (1/D)
     Route: 058
     Dates: start: 20071218
  2. PREVACID [Concomitant]
  3. SENNOSIDE [Concomitant]
  4. DOCUSATE [Concomitant]
  5. CALCIUM D [Concomitant]
     Dosage: 400 MG, UNK
  6. OXAZEPAM [Concomitant]
  7. NOVO-PERIDOL [Concomitant]
  8. NOVO-TRAZODONE [Concomitant]
  9. ASAPHEN [Concomitant]
  10. LISINOPRIL [Concomitant]
  11. COUMADIN [Concomitant]
  12. DIGOXIN [Concomitant]
  13. BISOPROLOL [Concomitant]
  14. TYLENOL (CAPLET) [Concomitant]
     Dosage: UNK, AS NEEDED

REACTIONS (6)
  - ANAEMIA [None]
  - ANOREXIA [None]
  - DYSPEPSIA [None]
  - GASTROINTESTINAL AMYLOIDOSIS [None]
  - GASTROINTESTINAL HAEMORRHAGE [None]
  - PNEUMONIA [None]
